FAERS Safety Report 9079645 (Version 1)
Quarter: 2013Q1

REPORT INFORMATION
  Report Type: Spontaneous
  Country: FR (occurrence: FR)
  Receive Date: 20130130
  Receipt Date: 20130130
  Transmission Date: 20140127
  Serious: Yes (Life-Threatening)
  Sender: FDA-Public Use
  Company Number: FR-BAXTER-2013BAX002488

PATIENT
  Age: 25 Year
  Sex: Male
  Weight: 96 kg

DRUGS (17)
  1. ENDOXAN 2000 MG, LYOPHILISAT POUR SOLUTION INJECTABLE [Suspect]
     Indication: ACUTE LYMPHOCYTIC LEUKAEMIA
     Route: 042
     Dates: start: 20120816
  2. ENDOXAN 2000 MG, LYOPHILISAT POUR SOLUTION INJECTABLE [Suspect]
     Route: 042
     Dates: start: 20120830
  3. KIDROLASE [Suspect]
     Indication: ACUTE LYMPHOCYTIC LEUKAEMIA
     Dosage: 6000 UG/M2
     Route: 042
     Dates: start: 20120904, end: 20120908
  4. KIDROLASE [Suspect]
     Dosage: 6000 UG/M2
     Route: 042
     Dates: start: 20120823, end: 20120827
  5. DAUNORUBICINE [Suspect]
     Indication: ACUTE LYMPHOCYTIC LEUKAEMIA
     Route: 042
     Dates: start: 20120830, end: 20120831
  6. DAUNORUBICINE [Suspect]
     Route: 042
     Dates: start: 20120816, end: 20120818
  7. ONCOVIN [Suspect]
     Indication: ACUTE LYMPHOCYTIC LEUKAEMIA
     Route: 042
     Dates: start: 20120816, end: 20120822
  8. ONCOVIN [Suspect]
     Route: 042
     Dates: start: 20120830
  9. SOLUMEDROL [Suspect]
     Indication: ACUTE LYMPHOCYTIC LEUKAEMIA
     Route: 065
     Dates: start: 20120816, end: 20120829
  10. METHOTREXATE [Suspect]
     Indication: PRODUCT USED FOR UNKNOWN INDICATION
     Route: 037
     Dates: start: 20120816
  11. METHOTREXATE [Suspect]
     Route: 037
     Dates: start: 20120823
  12. ARACYTINE [Suspect]
     Indication: PRODUCT USED FOR UNKNOWN INDICATION
     Route: 037
     Dates: start: 20120816
  13. ARACYTINE [Suspect]
     Route: 037
     Dates: start: 20120823
  14. DEPOMEDROL [Suspect]
     Indication: PRODUCT USED FOR UNKNOWN INDICATION
     Route: 037
     Dates: start: 20120816
  15. DEPOMEDROL [Suspect]
     Route: 037
     Dates: start: 20120823
  16. SERETIDE [Concomitant]
     Indication: ASTHMA
     Dosage: 2 PUFFS
     Route: 055
  17. VENTOLINE [Concomitant]
     Indication: ASTHMA
     Route: 055

REACTIONS (1)
  - Pancreatitis acute [Recovered/Resolved]
